FAERS Safety Report 4358084-5 (Version None)
Quarter: 2004Q2

REPORT INFORMATION
  Report Type: 
  Country: None (occurrence: None)
  Receive Date: 20040513
  Receipt Date: 20040428
  Transmission Date: 20050107
  Serious: Yes (Other)
  Sender: FDA-Public Use
  Company Number: A-US2004-05911

PATIENT
  Age: 51 Year
  Sex: Female

DRUGS (6)
  1. TRACLEER [Suspect]
     Indication: PULMONARY HYPERTENSION
     Dosage: SEE IMAGE
     Route: 048
     Dates: start: 20040409, end: 20040422
  2. TRACLEER [Suspect]
     Indication: PULMONARY HYPERTENSION
     Dosage: SEE IMAGE
     Route: 048
     Dates: start: 20040428
  3. CIPRO [Suspect]
     Indication: INFECTION
     Dosage: ORAL
     Route: 048
     Dates: start: 20040401, end: 20040422
  4. NIFEDIPINE [Concomitant]
  5. IMURAN [Concomitant]
  6. PREDNISONE [Concomitant]

REACTIONS (8)
  - DERMATITIS [None]
  - DYSPNOEA [None]
  - ERYTHEMA [None]
  - EYELID OEDEMA [None]
  - FACE OEDEMA [None]
  - HYPERSENSITIVITY [None]
  - PRURITUS [None]
  - RASH MACULAR [None]
